FAERS Safety Report 25969415 (Version 1)
Quarter: 2025Q4

REPORT INFORMATION
  Report Type: Spontaneous
  Country: US (occurrence: None)
  Receive Date: 20251027
  Receipt Date: 20251027
  Transmission Date: 20260118
  Serious: No
  Sender: FDA-CTU
  Company Number: None

PATIENT
  Age: 74 Year
  Sex: Male

DRUGS (1)
  1. PIRFENIDONE [Suspect]
     Active Substance: PIRFENIDONE
     Dosage: 801 MG 3 TIMES A DAY ORAL ?
     Route: 048

REACTIONS (3)
  - Abdominal pain upper [None]
  - Lethargy [None]
  - Therapy cessation [None]

NARRATIVE: CASE EVENT DATE: 20250903
